FAERS Safety Report 4527227-2 (Version None)
Quarter: 2004Q4

REPORT INFORMATION
  Report Type: 
  Country: None (occurrence: None)
  Receive Date: 20041215
  Receipt Date: 20041027
  Transmission Date: 20050328
  Serious: Yes (Death, Life-Threatening, Hospitalization)
  Sender: FDA-Public Use
  Company Number: PHBS2004IT14283

PATIENT
  Age: 46 Year
  Sex: Female

DRUGS (3)
  1. MEDROL [Suspect]
     Indication: RHEUMATOID ARTHRITIS
     Dosage: 8 MG/D
     Route: 048
     Dates: start: 20040707, end: 20041007
  2. PLAQUENIL [Suspect]
     Indication: RHEUMATOID ARTHRITIS
     Dosage: 200 MG/D
     Route: 048
     Dates: start: 20040707, end: 20041007
  3. SANDIMMUNE [Suspect]
     Indication: RHEUMATOID ARTHRITIS
     Dosage: 100 MG/D
     Route: 048
     Dates: start: 20040707, end: 20041007

REACTIONS (6)
  - ALANINE AMINOTRANSFERASE INCREASED [None]
  - ASPARTATE AMINOTRANSFERASE INCREASED [None]
  - DEATH [None]
  - HEPATITIS FULMINANT [None]
  - LIVER TRANSPLANT [None]
  - PROTHROMBIN TIME PROLONGED [None]
